FAERS Safety Report 5395949-X (Version None)
Quarter: 2007Q3

REPORT INFORMATION
  Report Type: 
  Country: None (occurrence: None)
  Receive Date: 20070724
  Receipt Date: 20070712
  Transmission Date: 20080115
  Serious: Yes (Hospitalization, Other)
  Sender: FDA-Public Use
  Company Number: US-PFIZER INC-2007057618

PATIENT
  Sex: Female
  Weight: 82.727 kg

DRUGS (1)
  1. PROCARDIA [Suspect]
     Indication: HYPERTENSION

REACTIONS (2)
  - BLOOD PRESSURE INADEQUATELY CONTROLLED [None]
  - CARDIAC FLUTTER [None]
